FAERS Safety Report 10370709 (Version 2)
Quarter: 2014Q4

REPORT INFORMATION
  Report Type: Spontaneous
  Country: SE (occurrence: SE)
  Receive Date: 20140808
  Receipt Date: 20141029
  Transmission Date: 20150528
  Serious: Yes (Other)
  Sender: FDA-Public Use
  Company Number: SE-JNJFOC-20140719875

PATIENT
  Age: 61 Year
  Sex: Male

DRUGS (2)
  1. XEPLION [Suspect]
     Active Substance: PALIPERIDONE PALMITATE
     Indication: SCHIZOPHRENIA, PARANOID TYPE
     Route: 030
     Dates: end: 201205
  2. XEPLION [Suspect]
     Active Substance: PALIPERIDONE PALMITATE
     Indication: ASPERGER^S DISORDER
     Route: 030
     Dates: end: 201205

REACTIONS (4)
  - Fungal infection [Not Recovered/Not Resolved]
  - Haemorrhage [Unknown]
  - Thrombosis [Unknown]
  - Lip swelling [Not Recovered/Not Resolved]
